FAERS Safety Report 17077994 (Version 2)
Quarter: 2019Q4

REPORT INFORMATION
  Report Type: Spontaneous
  Country: US (occurrence: US)
  Receive Date: 20191126
  Receipt Date: 20191210
  Transmission Date: 20200122
  Serious: Yes (Hospitalization)
  Sender: FDA-Public Use
  Company Number: US-TEVA-2019-US-1142690

PATIENT
  Age: 55 Year
  Sex: Male

DRUGS (2)
  1. ASPIRIN. [Suspect]
     Active Substance: ASPIRIN
     Indication: ANTIPLATELET THERAPY
     Dosage: 325 MILLIGRAM DAILY;
     Route: 065
  2. CLOPIDOGREL [Suspect]
     Active Substance: CLOPIDOGREL BISULFATE
     Indication: ANTIPLATELET THERAPY
     Dosage: 75 MILLIGRAM DAILY;
     Route: 065

REACTIONS (7)
  - Mediastinal haematoma [Recovered/Resolved]
  - Haemothorax [Recovered/Resolved]
  - Hypotension [Recovered/Resolved]
  - Mediastinal haemorrhage [Recovered/Resolved]
  - Tachycardia [Recovered/Resolved]
  - Pleural effusion [Recovered/Resolved]
  - Cardiac dysfunction [Recovered/Resolved]
